FAERS Safety Report 23783103 (Version 2)
Quarter: 2024Q2

REPORT INFORMATION
  Report Type: Report from Study
  Country: CA (occurrence: CA)
  Receive Date: 20240425
  Receipt Date: 20240628
  Transmission Date: 20240715
  Serious: Yes (Other)
  Sender: FDA-Public Use
  Company Number: CA-ABBVIE-5732292

PATIENT
  Sex: Male

DRUGS (4)
  1. SKYRIZI [Suspect]
     Active Substance: RISANKIZUMAB-RZAA
     Indication: Crohn^s disease
     Route: 058
     Dates: start: 20230929
  2. SKYRIZI [Suspect]
     Active Substance: RISANKIZUMAB-RZAA
     Route: 058
  3. INFLIXIMAB [Suspect]
     Active Substance: INFLIXIMAB
     Indication: Product used for unknown indication
     Route: 065
  4. PREDNISONE [Concomitant]
     Active Substance: PREDNISONE
     Indication: Product used for unknown indication
     Dosage: TAPER

REACTIONS (9)
  - Stoma site haemorrhage [Unknown]
  - Crohn^s disease [Unknown]
  - Drug ineffective [Unknown]
  - Perforation [Unknown]
  - Stomal hernia [Unknown]
  - Therapeutic response shortened [Unknown]
  - Gastrointestinal wall thickening [Unknown]
  - Gastrointestinal disorder [Unknown]
  - Enteritis [Unknown]

NARRATIVE: CASE EVENT DATE: 20240401
